FAERS Safety Report 9868196 (Version 2)
Quarter: 2014Q1

REPORT INFORMATION
  Report Type: Report from Study
  Country: CA (occurrence: CA)
  Receive Date: 20140204
  Receipt Date: 20140310
  Transmission Date: 20141002
  Serious: Yes (Death, Other)
  Sender: FDA-Public Use
  Company Number: PHHY2014CA012257

PATIENT
  Sex: Male

DRUGS (1)
  1. CLOZARIL [Suspect]
     Indication: SCHIZOPHRENIA
     Dates: start: 20131113

REACTIONS (4)
  - Pneumonia aspiration [Fatal]
  - Neurodegenerative disorder [Unknown]
  - Catatonia [Unknown]
  - Dystonia [Unknown]
